FAERS Safety Report 5330157-X (Version None)
Quarter: 2007Q2

REPORT INFORMATION
  Report Type: 
  Country: None (occurrence: None)
  Receive Date: 20070521
  Receipt Date: 20070508
  Transmission Date: 20071010
  Serious: Yes (Hospitalization)
  Sender: FDA-Public Use
  Company Number: US-ELI_LILLY_AND_COMPANY-US200704001677

PATIENT
  Age: 80 Year
  Sex: Female
  Weight: 57.596 kg

DRUGS (4)
  1. COUMADIN [Concomitant]
  2. LOVASTATIN [Concomitant]
  3. SYNTHROID [Concomitant]
  4. FORTEO [Suspect]
     Indication: OSTEOPOROSIS
     Dates: start: 20060701

REACTIONS (4)
  - BALANCE DISORDER [None]
  - FALL [None]
  - INJURY [None]
  - SUBDURAL HAEMATOMA [None]
